FAERS Safety Report 4265943-0 (Version None)
Quarter: 2004Q1

REPORT INFORMATION
  Report Type: 
  Country: None (occurrence: None)
  Receive Date: 20040106
  Receipt Date: 20031223
  Transmission Date: 20041129
  Serious: Yes (Hospitalization)
  Sender: FDA-Public Use
  Company Number: 03P-087-0237264-00

PATIENT
  Age: 26 Year
  Sex: Male

DRUGS (6)
  1. NORVIR [Suspect]
     Indication: HIV INFECTION
     Dosage: 200 MG, 2 IN 1 D, PER ORAL
     Route: 048
     Dates: start: 20000502
  2. INDINAVIR [Suspect]
     Indication: HIV INFECTION
     Dosage: 400 MG, 2 IN 1 D, PER ORAL
     Route: 048
     Dates: start: 20000502
  3. ZIDOVUDINE [Concomitant]
  4. DIDANOSINE [Concomitant]
  5. TRANEXAMIC ACID [Concomitant]
  6. FACTOR IX COMPLEX [Concomitant]

REACTIONS (3)
  - GINGIVAL BLEEDING [None]
  - POST PROCEDURAL HAEMORRHAGE [None]
  - TOOTH EXTRACTION [None]
